FAERS Safety Report 10098976 (Version 1)
Quarter: 2014Q2

REPORT INFORMATION
  Report Type: Spontaneous
  Country: US (occurrence: None)
  Receive Date: 20140422
  Receipt Date: 20140422
  Transmission Date: 20141212
  Serious: No
  Sender: FDA-Public Use
  Company Number: None

PATIENT
  Age: 22 Year
  Sex: Female
  Weight: 61.24 kg

DRUGS (1)
  1. PAROXETINE [Suspect]
     Indication: GENERALISED ANXIETY DISORDER
     Dosage: AT BEDTIME TAKEN BY MOUTH
     Route: 048

REACTIONS (5)
  - Distractibility [None]
  - Apathy [None]
  - Memory impairment [None]
  - Condition aggravated [None]
  - Attention deficit/hyperactivity disorder [None]
